FAERS Safety Report 5396646-7 (Version None)
Quarter: 2007Q3

REPORT INFORMATION
  Report Type: 
  Country: None (occurrence: None)
  Receive Date: 20070725
  Receipt Date: 20070719
  Transmission Date: 20080115
  Serious: Yes (Life-Threatening, Hospitalization, Disabling)
  Sender: FDA-Public Use
  Company Number: B0397209A

PATIENT
  Age: 63 Year
  Sex: Male
  Weight: 68 kg

DRUGS (1)
  1. DUTASTERIDE [Suspect]
     Indication: NEOPLASM PROPHYLAXIS
     Dosage: .5MG PER DAY
     Route: 048
     Dates: start: 20031127

REACTIONS (4)
  - CHEST PAIN [None]
  - DYSPNOEA [None]
  - METASTASES TO LIVER [None]
  - NON-SMALL CELL LUNG CANCER [None]
